FAERS Safety Report 4284610-0 (Version None)
Quarter: 2004Q1

REPORT INFORMATION
  Report Type: 
  Country: None (occurrence: None)
  Receive Date: 20040130
  Receipt Date: 20040107
  Transmission Date: 20041129
  Serious: Yes (Death, Other)
  Sender: FDA-Public Use
  Company Number: JP_030500885

PATIENT
  Age: 68 Year
  Sex: Male
  Weight: 47 kg

DRUGS (5)
  1. GEMZAR [Suspect]
     Indication: PANCREATIC CARCINOMA
     Dosage: 1400 MG/OTHER
     Route: 050
     Dates: start: 20020108, end: 20021008
  2. FAMOTIDINE [Concomitant]
  3. LOXONIN (LOXOPROFEN SODIUM) [Concomitant]
  4. SELBEX (TEPRENONE) [Concomitant]
  5. LASIX [Concomitant]

REACTIONS (8)
  - ASCITES [None]
  - CONDITION AGGRAVATED [None]
  - DISEASE PROGRESSION [None]
  - GASTROINTESTINAL HAEMORRHAGE [None]
  - METASTASES TO PERITONEUM [None]
  - NEPHRITIS INTERSTITIAL [None]
  - RENAL FAILURE [None]
  - RENAL TUBULAR DISORDER [None]
